FAERS Safety Report 14940210 (Version 3)
Quarter: 2018Q3

REPORT INFORMATION
  Report Type: Spontaneous
  Country: US (occurrence: US)
  Receive Date: 20180525
  Receipt Date: 20180813
  Transmission Date: 20181010
  Serious: Yes (Other)
  Sender: FDA-Public Use
  Company Number: US-GLAXOSMITHKLINE-US2018GSK089861

PATIENT
  Age: 62 Year
  Sex: Female

DRUGS (1)
  1. BENLYSTA [Suspect]
     Active Substance: BELIMUMAB
     Indication: PRODUCT USED FOR UNKNOWN INDICATION
     Dosage: UNK UNK, CYC
     Route: 042

REACTIONS (14)
  - Urinary hesitation [Not Recovered/Not Resolved]
  - Musculoskeletal pain [Unknown]
  - Neuralgia [Unknown]
  - Ill-defined disorder [Unknown]
  - Condition aggravated [Unknown]
  - Chest pain [Unknown]
  - Device failure [Unknown]
  - Malaise [Unknown]
  - Pain [Unknown]
  - Abdominal hernia [Unknown]
  - Abdominal pain [Unknown]
  - Urinary tract infection [Not Recovered/Not Resolved]
  - Abdominal hernia repair [Unknown]
  - Micturition urgency [Not Recovered/Not Resolved]

NARRATIVE: CASE EVENT DATE: 20180804
